FAERS Safety Report 6821249-4 (Version None)
Quarter: 2010Q3

REPORT INFORMATION
  Report Type: 
  Country: None (occurrence: None)
  Receive Date: 20100707
  Receipt Date: 20080415
  Transmission Date: 20110219
  Serious: Yes (Death, Other)
  Sender: FDA-Public Use
  Company Number: US-PFIZER INC-2008033060

PATIENT
  Sex: Female

DRUGS (3)
  1. ZOLOFT [Suspect]
     Indication: ANXIETY
     Route: 048
     Dates: start: 20060911, end: 20060920
  2. ZOLOFT [Suspect]
     Indication: DEPRESSION
  3. ORTHO EVRA [Concomitant]
     Dates: end: 20060920

REACTIONS (1)
  - COMPLETED SUICIDE [None]
